FAERS Safety Report 7946697-0 (Version None)
Quarter: 2011Q4

REPORT INFORMATION
  Report Type: 
  Country: None (occurrence: None)
  Receive Date: 20111129
  Receipt Date: 20111128
  Transmission Date: 20120403
  Serious: No
  Sender: FDA-Public Use
  Company Number: US-PFIZER INC-2011290062

PATIENT
  Sex: Male
  Weight: 70.295 kg

DRUGS (4)
  1. WARFARIN SODIUM [Concomitant]
     Indication: HEART VALVE REPLACEMENT
     Dosage: UNK
  2. LEVOXYL [Concomitant]
     Indication: THYROID DISORDER
     Dosage: UNK
  3. ALPRAZOLAM [Suspect]
     Dosage: 1 MG, DAILY
  4. ALPRAZOLAM [Suspect]
     Indication: PANIC ATTACK
     Dosage: UNK

REACTIONS (2)
  - DRUG INEFFECTIVE [None]
  - INSOMNIA [None]
